FAERS Safety Report 24717649 (Version 1)
Quarter: 2024Q4

REPORT INFORMATION
  Report Type: Spontaneous
  Country: US (occurrence: None)
  Receive Date: 20241210
  Receipt Date: 20241210
  Transmission Date: 20250114
  Serious: Yes (Hospitalization)
  Sender: Public
  Company Number: None

PATIENT
  Sex: Male

DRUGS (11)
  1. LENALIDOMIDE [Suspect]
     Active Substance: LENALIDOMIDE
     Indication: Plasma cell myeloma
     Dosage: FREQ: TAKE 1 CAPSULE BY MOUTH DAILY FOR DAYS 1-21 OF 28 DAY CYCLE?
     Route: 048
  2. ALLOPURINOL [Concomitant]
     Active Substance: ALLOPURINOL
  3. CALCIUM CARBONATE [Concomitant]
     Active Substance: CALCIUM CARBONATE
  4. CETIRIZINE HCL [Concomitant]
     Active Substance: CETIRIZINE HYDROCHLORIDE
  5. DARZALEX [Concomitant]
     Active Substance: DARATUMUMAB
  6. ELIQUIS [Concomitant]
     Active Substance: APIXABAN
  7. GLUCOSAMINE [Concomitant]
     Active Substance: GLUCOSAMINE
  8. LENALIDOMIDE [Concomitant]
     Active Substance: LENALIDOMIDE
  9. LIDO/PRILOCN [Concomitant]
  10. MAGNESIUM [Concomitant]
     Active Substance: MAGNESIUM
  11. MIRALAX [Concomitant]
     Active Substance: POLYETHYLENE GLYCOL 3350

REACTIONS (6)
  - Pneumonia [None]
  - Acute kidney injury [None]
  - Pancytopenia [None]
  - Therapy interrupted [None]
  - Legionella infection [None]
  - Candida infection [None]
